FAERS Safety Report 6057767-9 (Version None)
Quarter: 2009Q1

REPORT INFORMATION
  Report Type: 
  Country: None (occurrence: None)
  Receive Date: 20090129
  Receipt Date: 20090121
  Transmission Date: 20090719
  Serious: Yes (Other)
  Sender: FDA-Public Use
  Company Number: PHEH2009US01035

PATIENT

DRUGS (1)
  1. COMBIPATCH [Suspect]
     Dosage: UNK

REACTIONS (2)
  - RASH [None]
  - UTERINE DISORDER [None]
